FAERS Safety Report 8147768-9 (Version None)
Quarter: 2012Q1

REPORT INFORMATION
  Report Type: 
  Country: None (occurrence: None)
  Receive Date: 20120218
  Receipt Date: 20110315
  Transmission Date: 20120608
  Serious: No
  Sender: FDA-Public Use
  Company Number: US-ALLERGAN-1103773US

PATIENT
  Age: 32 Year
  Sex: Female

DRUGS (1)
  1. BOTOX COSMETIC [Suspect]
     Indication: SKIN WRINKLING
     Dosage: 24 UNITS, SINGLE
     Route: 030
     Dates: start: 20110301, end: 20110301

REACTIONS (13)
  - DIARRHOEA [None]
  - PARAESTHESIA [None]
  - HEADACHE [None]
  - DRY MOUTH [None]
  - HEART RATE INCREASED [None]
  - PRURITUS GENERALISED [None]
  - MUSCULAR WEAKNESS [None]
  - MUSCULOSKELETAL STIFFNESS [None]
  - HYPERSENSITIVITY [None]
  - INFLUENZA LIKE ILLNESS [None]
  - DYSPHAGIA [None]
  - FATIGUE [None]
  - INSOMNIA [None]
